FAERS Safety Report 5379559-6 (Version None)
Quarter: 2007Q3

REPORT INFORMATION
  Report Type: 
  Country: None (occurrence: None)
  Receive Date: 20070703
  Receipt Date: 20070626
  Transmission Date: 20080115
  Serious: Yes (Other)
  Sender: FDA-Public Use
  Company Number: 163-21880-07050876

PATIENT
  Age: 81 Year
  Sex: Female

DRUGS (4)
  1. REVLIMID [Suspect]
     Indication: MULTIPLE MYELOMA
     Dosage: SEE IMAGE
     Route: 048
     Dates: start: 20070201
  2. REVLIMID [Suspect]
     Indication: MULTIPLE MYELOMA
     Dosage: SEE IMAGE
     Route: 048
     Dates: start: 20070201
  3. PREDNISONE TAB [Concomitant]
  4. BLOOD PRESSURE PILL (ANTIHYPERTENSIVES) (PILL) [Concomitant]

REACTIONS (3)
  - CARBUNCLE [None]
  - DRUG HYPERSENSITIVITY [None]
  - STAPHYLOCOCCAL SKIN INFECTION [None]
